FAERS Safety Report 6104736-6 (Version None)
Quarter: 2009Q1

REPORT INFORMATION
  Report Type: 
  Country: None (occurrence: None)
  Receive Date: 20090302
  Receipt Date: 20090220
  Transmission Date: 20090719
  Serious: Yes (Death, Life-Threatening, Hospitalization, Other)
  Sender: FDA-Public Use
  Company Number: 237541J08USA

PATIENT
  Age: 58 Year
  Sex: Male
  Weight: 75 kg

DRUGS (12)
  1. REBIF [Suspect]
     Indication: MULTIPLE SCLEROSIS
     Dosage: 44 MCG, 3 IN 1 WEEKS, SUBCUTANEOUS
     Route: 058
     Dates: start: 20060504, end: 20080425
  2. REBIF [Suspect]
     Indication: MULTIPLE SCLEROSIS
     Dosage: 44 MCG, 3 IN 1 WEEKS, SUBCUTANEOUS
     Route: 058
     Dates: start: 20080501, end: 20081001
  3. BACLOFEN [Concomitant]
  4. LEXAPRO [Concomitant]
  5. COREG [Concomitant]
  6. TIZANIDINE HCL [Concomitant]
  7. DIAZEPAM [Concomitant]
  8. PROVIGIL [Concomitant]
  9. HYDROCODONE (HYDROCODONE) [Concomitant]
  10. AMBIEN [Concomitant]
  11. PRILOSEC [Concomitant]
  12. MULTI-VITAMINS [Concomitant]

REACTIONS (10)
  - ABDOMINAL ABSCESS [None]
  - ACUTE RESPIRATORY DISTRESS SYNDROME [None]
  - CARDIAC ARREST [None]
  - CARDIAC DISORDER [None]
  - FISTULA DISCHARGE [None]
  - LARGE INTESTINE PERFORATION [None]
  - LUNG DISORDER [None]
  - POST PROCEDURAL COMPLICATION [None]
  - RENAL DISORDER [None]
  - SEPSIS [None]
